FAERS Safety Report 21706586 (Version 1)
Quarter: 2022Q4

REPORT INFORMATION
  Report Type: Spontaneous
  Country: IT (occurrence: IT)
  Receive Date: 20221209
  Receipt Date: 20221209
  Transmission Date: 20230112
  Serious: Yes (Hospitalization, Other)
  Sender: FDA-Public Use
  Company Number: IT-SUN PHARMACEUTICAL INDUSTRIES LTD-2022RR-367799

PATIENT
  Age: 66 Year
  Sex: Male

DRUGS (7)
  1. BORTEZOMIB [Suspect]
     Active Substance: BORTEZOMIB
     Indication: Hypergammaglobulinaemia benign monoclonal
     Dosage: 1.3 MILLIGRAM/SQ. METER ON DAYS 1, 8, 15, 22
     Route: 058
  2. LENALIDOMIDE [Suspect]
     Active Substance: LENALIDOMIDE
     Indication: Hypergammaglobulinaemia benign monoclonal
     Dosage: UNK
     Route: 065
  3. GANCICLOVIR [Suspect]
     Active Substance: GANCICLOVIR
     Indication: Infection
     Dosage: 1.25 MILLIGRAM/KILOGRAM THREE TIMES PER WEEK
     Route: 042
  4. SULFAMETHOXAZOLE\TRIMETHOPRIM [Suspect]
     Active Substance: SULFAMETHOXAZOLE\TRIMETHOPRIM
     Indication: Hypergammaglobulinaemia benign monoclonal
     Dosage: UNK
     Route: 065
  5. DEXAMETHASONE [Suspect]
     Active Substance: DEXAMETHASONE
     Indication: Hypergammaglobulinaemia benign monoclonal
     Dosage: 20 MILLIGRAM PER OS ON DAYS 1, 8, 15, 22
     Route: 048
  6. CYCLOPHOSPHAMIDE [Suspect]
     Active Substance: CYCLOPHOSPHAMIDE
     Indication: Hypergammaglobulinaemia benign monoclonal
     Dosage: 350 MILLIGRAM PER OS ON DAYS 1, 8, 15
     Route: 048
  7. DARATUMUMAB [Suspect]
     Active Substance: DARATUMUMAB
     Indication: Monoclonal gammopathy
     Dosage: UNK
     Route: 065

REACTIONS (3)
  - Disease progression [Not Recovered/Not Resolved]
  - Hypersensitivity [Unknown]
  - Neutropenia [Unknown]
